FAERS Safety Report 16384536 (Version 1)
Quarter: 2019Q2

REPORT INFORMATION
  Report Type: Spontaneous
  Country: FR (occurrence: FR)
  Receive Date: 20190603
  Receipt Date: 20190603
  Transmission Date: 20190711
  Serious: Yes (Hospitalization)
  Sender: FDA-Public Use
  Company Number: FR-MYLANLABS-2019M1051214

PATIENT
  Age: 4 Year
  Sex: Female
  Weight: 15 kg

DRUGS (1)
  1. DEXAMETHASONE MYLAN [Suspect]
     Active Substance: DEXAMETHASONE
     Indication: LEUKAEMIA
     Dosage: UNK
     Route: 042
     Dates: start: 201804, end: 20180709

REACTIONS (2)
  - Gait disturbance [Not Recovered/Not Resolved]
  - Amyotrophy [Recovering/Resolving]

NARRATIVE: CASE EVENT DATE: 201805
